FAERS Safety Report 8172695-0 (Version None)
Quarter: 2012Q1

REPORT INFORMATION
  Report Type: 
  Country: None (occurrence: None)
  Receive Date: 20120223
  Receipt Date: 20120214
  Transmission Date: 20120608
  Serious: Yes (Life-Threatening, Hospitalization, Other)
  Sender: FDA-Public Use
  Company Number: CL-390-2012

PATIENT
  Age: 18 Year
  Sex: Male

DRUGS (2)
  1. MIDAZOLAM [Suspect]
  2. VECURONIUM BROMIDE [Concomitant]

REACTIONS (2)
  - HYPOXIA [None]
  - ANGIOEDEMA [None]
